FAERS Safety Report 5363010-6 (Version None)
Quarter: 2007Q2

REPORT INFORMATION
  Report Type: 
  Country: None (occurrence: None)
  Receive Date: 20070615
  Receipt Date: 20070605
  Transmission Date: 20071010
  Serious: Yes (Hospitalization)
  Sender: FDA-Public Use
  Company Number: GXKR2007GB04890

PATIENT
  Age: 72 Year
  Sex: Male
  Weight: 87 kg

DRUGS (5)
  1. ITRACONAZOLE [Suspect]
     Dosage: 200 MG, BID, ORAL
     Route: 048
     Dates: start: 20060421
  2. FLUTICASONE PROPIONATE [Concomitant]
  3. MUCODYNE (CARBOCISTEINE) [Concomitant]
  4. OXIS (FORMOTEROL) [Concomitant]
  5. VENTOLIN/00139501/ (SALBUTAMOL) [Concomitant]

REACTIONS (4)
  - BLOOD TEST ABNORMAL [None]
  - NEUROPATHY [None]
  - OEDEMA PERIPHERAL [None]
  - PARALYSIS [None]
